FAERS Safety Report 26143338 (Version 1)
Quarter: 2025Q4

REPORT INFORMATION
  Report Type: Spontaneous
  Country: US (occurrence: US)
  Receive Date: 20251211
  Receipt Date: 20251211
  Transmission Date: 20260118
  Serious: No
  Sender: BRISTOL-MYERS SQUIBB COMPANY
  Company Number: US-BRISTOL-MYERS SQUIBB COMPANY-2025-166365

PATIENT
  Age: 55 Year
  Sex: Male

DRUGS (1)
  1. SOTYKTU [Suspect]
     Active Substance: DEUCRAVACITINIB
     Indication: Product used for unknown indication

REACTIONS (5)
  - Chills [Unknown]
  - Nasopharyngitis [Unknown]
  - Nervousness [Unknown]
  - Hot flush [Unknown]
  - Product use issue [Unknown]

NARRATIVE: CASE EVENT DATE: 20251205
